FAERS Safety Report 24015429 (Version 1)
Quarter: 2024Q2

REPORT INFORMATION
  Report Type: Spontaneous
  Country: HU (occurrence: HU)
  Receive Date: 20240626
  Receipt Date: 20240626
  Transmission Date: 20240716
  Serious: Yes (Other)
  Sender: FDA-Public Use
  Company Number: HU-IMP-2024000383

PATIENT
  Age: 61 Year
  Sex: Male
  Weight: 97 kg

DRUGS (1)
  1. VIGAMOX [Suspect]
     Active Substance: MOXIFLOXACIN HYDROCHLORIDE
     Indication: Hordeolum
     Dosage: 3 DOSAGE FORM, QD (TWICE OR THRICE DAILY)
     Route: 047
     Dates: start: 20240509, end: 20240524

REACTIONS (1)
  - Arrhythmia [Not Recovered/Not Resolved]

NARRATIVE: CASE EVENT DATE: 20240523
